FAERS Safety Report 7539626-5 (Version None)
Quarter: 2011Q2

REPORT INFORMATION
  Report Type: 
  Country: None (occurrence: None)
  Receive Date: 20110610
  Receipt Date: 20110527
  Transmission Date: 20111010
  Serious: Yes (Other)
  Sender: FDA-Public Use
  Company Number: CA-CEPHALON-2011002808

PATIENT
  Sex: Male

DRUGS (8)
  1. CALCIUM CARBONATE [Concomitant]
  2. TOLTERODINE TARTRATE [Concomitant]
  3. ERGOCALCIFEROL [Concomitant]
  4. ASCORBIC ACID [Concomitant]
  5. MODAFINIL [Suspect]
     Route: 048
  6. COPAXONE [Suspect]
     Indication: MULTIPLE SCLEROSIS
     Dates: start: 20110109
  7. B-KOMPLEX [Concomitant]
  8. FAMPRIDINE [Concomitant]

REACTIONS (1)
  - MULTIPLE SCLEROSIS RELAPSE [None]
